FAERS Safety Report 5878828-0 (Version None)
Quarter: 2008Q3

REPORT INFORMATION
  Report Type: 
  Country: None (occurrence: None)
  Receive Date: 20080910
  Receipt Date: 20080910
  Transmission Date: 20090109
  Serious: Yes (Other)
  Sender: FDA-Public Use
  Company Number: None

PATIENT
  Age: 43 Year
  Sex: Female
  Weight: 61.2356 kg

DRUGS (1)
  1. MIRENA [Suspect]
     Indication: DYSMENORRHOEA
     Dosage: IMPLANT FIVE YRS INTRA-UTERINE
     Route: 015
     Dates: start: 20080316, end: 20080819

REACTIONS (18)
  - ABDOMINAL DISTENSION [None]
  - ABDOMINAL PAIN [None]
  - ALOPECIA [None]
  - BACK PAIN [None]
  - CONTRACEPTIVE DEVICE COMPLICATION [None]
  - DEPRESSION [None]
  - FATIGUE [None]
  - FEELING ABNORMAL [None]
  - HEADACHE [None]
  - INTRA-UTERINE CONTRACEPTIVE DEVICE REMOVAL [None]
  - LOSS OF EMPLOYMENT [None]
  - LOSS OF LIBIDO [None]
  - MEMORY IMPAIRMENT [None]
  - MENORRHAGIA [None]
  - PAIN IN EXTREMITY [None]
  - PALPITATIONS [None]
  - SUICIDAL IDEATION [None]
  - VISUAL IMPAIRMENT [None]
